FAERS Safety Report 9526573 (Version 2)
Quarter: 2013Q3

REPORT INFORMATION
  Report Type: Spontaneous
  Country: US (occurrence: US)
  Receive Date: 20130916
  Receipt Date: 20130916
  Transmission Date: 20140515
  Serious: Yes (Hospitalization, Other)
  Sender: FDA-Public Use
  Company Number: US-PFIZER INC-2013130125

PATIENT
  Age: 3 Year
  Sex: Female
  Weight: 16.1 kg

DRUGS (5)
  1. DILANTIN-125 [Suspect]
     Indication: CONVULSION
     Dosage: 40 MG, 2X/DAY
     Route: 048
     Dates: start: 20040519, end: 20040521
  2. DILANTIN-125 [Suspect]
     Dosage: 50 MG (2 ML OF 125MG/ 5ML), 2X/DAY
     Route: 048
     Dates: start: 20040521, end: 20040531
  3. CEREBYX [Concomitant]
     Indication: CONVULSION
     Dosage: 40 MG, 2X/DAY
     Route: 042
     Dates: start: 20040515, end: 20040518
  4. ATIVAN [Concomitant]
     Indication: CONVULSION
     Dosage: 1 MG /0.5 ML  AS NEEDED
     Route: 042
     Dates: start: 20040515, end: 20040522
  5. DIASTAT [Concomitant]
     Dosage: 10MG/1 ML, AS NEEDED
     Route: 054
     Dates: start: 20040519, end: 20040526

REACTIONS (2)
  - Stevens-Johnson syndrome [Recovering/Resolving]
  - Toxic epidermal necrolysis [Recovering/Resolving]
